FAERS Safety Report 13961884 (Version 1)
Quarter: 2017Q3

REPORT INFORMATION
  Report Type: Report from Study
  Country: US (occurrence: US)
  Receive Date: 20170912
  Receipt Date: 20170912
  Transmission Date: 20171128
  Serious: Yes (Other)
  Sender: FDA-Public Use
  Company Number: US-CORCEPT THERAPEUTICS INC.-US-2017CRT000458

PATIENT

DRUGS (4)
  1. KORLYM [Suspect]
     Active Substance: MIFEPRISTONE
     Indication: PITUITARY-DEPENDENT CUSHING^S SYNDROME
     Dosage: UNK UNK
     Route: 048
     Dates: start: 201603, end: 201604
  2. KORLYM [Suspect]
     Active Substance: MIFEPRISTONE
     Dosage: 600 MG, QD
     Route: 048
     Dates: start: 201604, end: 201606
  3. KORLYM [Suspect]
     Active Substance: MIFEPRISTONE
     Dosage: 900 MG, QD
     Route: 048
     Dates: start: 201606, end: 201703
  4. KORLYM [Suspect]
     Active Substance: MIFEPRISTONE
     Dosage: 1200 MG, QD
     Route: 048
     Dates: start: 201703, end: 201708

REACTIONS (6)
  - Irritability [Unknown]
  - Feeling jittery [Unknown]
  - Cortisol abnormal [Unknown]
  - Blood bilirubin increased [Unknown]
  - Endometrial thickening [Unknown]
  - Headache [Unknown]

NARRATIVE: CASE EVENT DATE: 201603
